FAERS Safety Report 6713962-4 (Version None)
Quarter: 2010Q2

REPORT INFORMATION
  Report Type: 
  Country: None (occurrence: None)
  Receive Date: 20100506
  Receipt Date: 20100504
  Transmission Date: 20101027
  Serious: Yes (Other)
  Sender: FDA-Public Use
  Company Number: AT-BRISTOL-MYERS SQUIBB COMPANY-15091077

PATIENT
  Age: 47 Year
  Sex: Male
  Weight: 75 kg

DRUGS (5)
  1. ABILIFY [Suspect]
     Indication: IMPULSE-CONTROL DISORDER
     Dosage: 5MG DAILY STARTED ON 29MAR10;INCREASED TO 15 MG DAILY ON 05APR10
     Route: 048
     Dates: start: 20100413
  2. RISPERIDONE [Concomitant]
     Indication: SCHIZOPHRENIA, PARANOID TYPE
     Dosage: DEPOT
     Route: 030
     Dates: start: 20080101
  3. ZUCLOPENTHIXOL DECANOATE [Concomitant]
     Indication: SCHIZOPHRENIA, PARANOID TYPE
     Route: 030
     Dates: start: 20080101
  4. PROTHIPENDYL HCL [Concomitant]
     Route: 048
  5. BIPERIDEN HYDROCHLORIDE TAB [Concomitant]
     Route: 048

REACTIONS (1)
  - ACUTE PSYCHOSIS [None]
